FAERS Safety Report 22086446 (Version 2)
Quarter: 2023Q1

REPORT INFORMATION
  Report Type: Spontaneous
  Country: SE (occurrence: SE)
  Receive Date: 20230312
  Receipt Date: 20230325
  Transmission Date: 20230418
  Serious: Yes (Disabling)
  Sender: FDA-Public Use
  Company Number: None

PATIENT
  Age: 58 Year
  Sex: Male
  Weight: 110 kg

DRUGS (1)
  1. AMLODIPINE BESYLATE [Suspect]
     Active Substance: AMLODIPINE BESYLATE
     Indication: Hypertension
     Dosage: 5 MG,QD (5 MG 1 TABLETT PER DAG)
     Route: 048
     Dates: start: 20221106

REACTIONS (5)
  - Lichen sclerosus [Recovered/Resolved]
  - Pruritus genital [Recovered/Resolved]
  - Erythema [Recovered/Resolved]
  - Oral pruritus [Recovered/Resolved]
  - Genital blister [Recovered/Resolved]

NARRATIVE: CASE EVENT DATE: 20221228
